FAERS Safety Report 8182165-1 (Version None)
Quarter: 2012Q1

REPORT INFORMATION
  Report Type: 
  Country: None (occurrence: None)
  Receive Date: 20120302
  Receipt Date: 20120224
  Transmission Date: 20120608
  Serious: Yes (Hospitalization, Other)
  Sender: FDA-Public Use
  Company Number: US-B.I. PHARMACEUTICALS,INC./RIDGEFIELD-2012-BP-03633BP

PATIENT
  Sex: Female

DRUGS (8)
  1. MIRAPEX [Suspect]
     Indication: NEUROPATHY PERIPHERAL
     Dosage: 0.75 MG
     Route: 048
     Dates: start: 20080101
  2. METOPROLOL SUCCINATE [Concomitant]
     Indication: CARDIAC DISORDER
     Dosage: 50 MG
     Route: 048
     Dates: start: 20100101
  3. ZETIA [Concomitant]
     Indication: BLOOD CHOLESTEROL INCREASED
     Dosage: 10 MG
     Route: 048
  4. SYNTHROID [Concomitant]
     Indication: HYPOTHYROIDISM
     Dosage: 50 MCG
     Route: 048
  5. FUROSEMIDE [Concomitant]
     Indication: CARDIAC DISORDER
     Dosage: 80 MG
     Route: 048
  6. HYDROCHLOROTHIAZIDE [Concomitant]
     Indication: HYPERTENSION
     Dosage: 12.5 MG
     Route: 048
  7. LOSARTAN POTASSIUM [Concomitant]
     Indication: HYPERTENSION
     Dosage: 50 MG
     Route: 048
  8. POTASSIUM CHLORIDE [Concomitant]
     Indication: ELECTROLYTE SUBSTITUTION THERAPY
     Dosage: 40 MEQ
     Route: 048

REACTIONS (4)
  - SKIN ULCER [None]
  - JOINT SWELLING [None]
  - MYOCARDIAL INFARCTION [None]
  - STRESS FRACTURE [None]
